FAERS Safety Report 6817927-3 (Version None)
Quarter: 2010Q3

REPORT INFORMATION
  Report Type: 
  Country: None (occurrence: None)
  Receive Date: 20100706
  Receipt Date: 20100505
  Transmission Date: 20110219
  Serious: Yes (Other)
  Sender: FDA-Public Use
  Company Number: US-BAYER-200930660NA

PATIENT
  Age: 55 Year
  Sex: Female
  Weight: 67 kg

DRUGS (31)
  1. MAGNEVIST [Suspect]
     Indication: NUCLEAR MAGNETIC RESONANCE IMAGING ABDOMINAL
     Dates: start: 20041109, end: 20041109
  2. MAGNEVIST [Suspect]
     Dates: start: 20050902, end: 20050902
  3. OMNISCAN [Suspect]
     Indication: NUCLEAR MAGNETIC RESONANCE IMAGING BRAIN
     Route: 042
     Dates: start: 20050722, end: 20050722
  4. OPTIMARK [Suspect]
     Indication: IMAGING PROCEDURE
  5. MULTIHANCE [Suspect]
     Indication: IMAGING PROCEDURE
  6. PROHANCE [Suspect]
     Indication: IMAGING PROCEDURE
  7. UNKNOWN GBCA [Suspect]
     Indication: NUCLEAR MAGNETIC RESONANCE IMAGING BRAIN
     Dates: start: 20051114, end: 20051114
  8. UNKNOWN GBCA [Suspect]
     Dates: start: 20050819, end: 20050819
  9. DOXIL [Concomitant]
     Dates: start: 20040101, end: 20050101
  10. VELCADE [Concomitant]
     Dates: start: 20040101, end: 20050101
  11. LEVOTHYROXINE SODIUM [Concomitant]
     Route: 048
  12. SLOWFE [Concomitant]
     Dosage: 1 TABLET
     Route: 048
     Dates: start: 20060201
  13. METOPROLOL TARTRATE [Concomitant]
  14. VALTREX [Concomitant]
  15. CALCITRIOL [Concomitant]
  16. DEXAMETHASONE [Concomitant]
  17. LEXAPRO [Concomitant]
  18. LIPITOR [Concomitant]
     Dates: start: 20090401
  19. RENOVA [Concomitant]
  20. PROVIGIL [Concomitant]
  21. CATAPRES [Concomitant]
     Dates: start: 20060901
  22. FUROSEMIDE [Concomitant]
  23. PROCRIT [Concomitant]
     Dates: start: 20070201, end: 20070701
  24. TOPROL-XL [Concomitant]
     Dates: start: 20051201, end: 20080501
  25. DIOVAN [Concomitant]
     Dates: start: 20080901, end: 20081001
  26. CLONIDINE [Concomitant]
     Dates: start: 20060401, end: 20060801
  27. VYTORIN [Concomitant]
     Dates: start: 20051201, end: 20080401
  28. DILANTIN [Concomitant]
  29. ADRIAMYCIN PFS [Concomitant]
  30. VAD CHEMOTHERAPY REGIMEN (VINCRISTINE, ADRIAMYCIN, DEXAMETHASONE) [Concomitant]
     Dates: start: 20040101
  31. MELPHALAN HYDROCHLORIDE [Concomitant]

REACTIONS (21)
  - DRY SKIN [None]
  - ERYTHEMA [None]
  - FIBROSIS [None]
  - HYPERKERATOSIS [None]
  - IMPAIRED HEALING [None]
  - MOBILITY DECREASED [None]
  - MUSCULAR WEAKNESS [None]
  - NEPHROGENIC SYSTEMIC FIBROSIS [None]
  - OEDEMA [None]
  - OEDEMA PERIPHERAL [None]
  - PAIN [None]
  - PETECHIAE [None]
  - PRURITUS [None]
  - RASH PAPULAR [None]
  - SKIN ATROPHY [None]
  - SKIN DISORDER [None]
  - SKIN EXFOLIATION [None]
  - SKIN HYPERTROPHY [None]
  - SKIN INDURATION [None]
  - SKIN TIGHTNESS [None]
  - SKIN ULCER [None]
